FAERS Safety Report 6988100-3 (Version None)
Quarter: 2010Q3

REPORT INFORMATION
  Report Type: 
  Country: None (occurrence: None)
  Receive Date: 20100916
  Receipt Date: 20100907
  Transmission Date: 20110219
  Serious: Yes (Life-Threatening, Hospitalization)
  Sender: FDA-Public Use
  Company Number: B0498717B

PATIENT
  Sex: Female

DRUGS (6)
  1. BLINDED VACCINE [Suspect]
     Route: 030
     Dates: start: 20060426, end: 20060426
  2. CHLORATE [Suspect]
  3. CLONAZEPAM [Suspect]
     Indication: ANXIOLYTIC THERAPY
     Route: 048
     Dates: start: 20080101, end: 20081213
  4. SALBUTAMOL [Suspect]
  5. DIAZEPAM [Suspect]
     Indication: ANXIOLYTIC THERAPY
     Dates: start: 20081214, end: 20081214
  6. CHLORAL HYDRATE [Concomitant]
     Indication: SEDATION
     Dosage: 5CC PER DAY
     Route: 048
     Dates: start: 20081101, end: 20081213

REACTIONS (6)
  - ANXIETY [None]
  - ASOCIAL BEHAVIOUR [None]
  - CRYING [None]
  - DEPRESSED MOOD [None]
  - INITIAL INSOMNIA [None]
  - SUICIDE ATTEMPT [None]
